FAERS Safety Report 15087665 (Version 1)
Quarter: 2018Q2

REPORT INFORMATION
  Report Type: Spontaneous
  Country: US (occurrence: US)
  Receive Date: 20180629
  Receipt Date: 20180629
  Transmission Date: 20180711
  Serious: Yes (Hospitalization)
  Sender: FDA-Public Use
  Company Number: US-BEH-2018092135

PATIENT
  Sex: Female
  Weight: 48.73 kg

DRUGS (17)
  1. DIPHENHYDRAMINE. [Concomitant]
     Active Substance: DIPHENHYDRAMINE
  2. LISINOPRIL. [Concomitant]
     Active Substance: LISINOPRIL
  3. PRAVACHOL [Concomitant]
     Active Substance: PRAVASTATIN SODIUM
  4. HIZENTRA [Suspect]
     Active Substance: HUMAN IMMUNOGLOBULIN G
     Dosage: 8 G, QW
     Route: 058
     Dates: start: 20110406
  5. GABAPENTIN. [Concomitant]
     Active Substance: GABAPENTIN
  6. PERCOCET                           /00446701/ [Concomitant]
     Active Substance: ACETAMINOPHEN\OXYCODONE HYDROCHLORIDE\OXYCODONE TEREPHTHALATE
  7. EPINEPHRINE. [Concomitant]
     Active Substance: EPINEPHRINE
  8. NAPROSYN [Concomitant]
     Active Substance: NAPROXEN
  9. SERTRALINE [Concomitant]
     Active Substance: SERTRALINE HYDROCHLORIDE
  10. VITAMIN D3 [Concomitant]
     Active Substance: CHOLECALCIFEROL
  11. HIZENTRA [Suspect]
     Active Substance: HUMAN IMMUNOGLOBULIN G
     Indication: HYPOGAMMAGLOBULINAEMIA
     Dosage: UNK
     Route: 058
  12. OMEPRAZOLE. [Concomitant]
     Active Substance: OMEPRAZOLE
  13. TRAZODONE [Concomitant]
     Active Substance: TRAZODONE HYDROCHLORIDE
  14. MIRALAX [Concomitant]
     Active Substance: POLYETHYLENE GLYCOL 3350
  15. DITROPAN [Concomitant]
     Active Substance: OXYBUTYNIN CHLORIDE
  16. METHADONE [Concomitant]
     Active Substance: METHADONE HYDROCHLORIDE
  17. CYCLOBENZAPRINE. [Concomitant]
     Active Substance: CYCLOBENZAPRINE

REACTIONS (1)
  - Intestinal obstruction [Unknown]
